FAERS Safety Report 8742817 (Version 2)
Quarter: 2012Q4

REPORT INFORMATION
  Report Type: 
  Country: CH (occurrence: CH)
  Receive Date: 20120824
  Receipt Date: 20120908
  Transmission Date: 20130627
  Serious: Yes (Other)
  Sender: FDA-Public Use
  Company Number: CH-TEVA-354292ISR

PATIENT
  Age: 83 Year
  Sex: Female
  Weight: 57 kg

DRUGS (7)
  1. AMOXICILLIN\CLAVULANATE POTASSIUM [Suspect]
     Dosage: 2250 Milligram Daily;
     Route: 048
     Dates: start: 200901, end: 20090203
  2. REMERON [Concomitant]
     Route: 048
  3. COLOSAN [Concomitant]
     Route: 048
  4. VALIUM [Concomitant]
     Dosage: 3.5 Milligram Daily;
     Route: 048
  5. LACDIGEST [Concomitant]
     Route: 048
  6. PARAGAR [Concomitant]
     Route: 048
  7. ASPIRIN CARDIO [Concomitant]
     Dosage: 100 Milligram Daily;
     Route: 048

REACTIONS (2)
  - Dysgeusia [Not Recovered/Not Resolved]
  - Tongue disorder [Unknown]
